FAERS Safety Report 25951597 (Version 1)
Quarter: 2025Q4

REPORT INFORMATION
  Report Type: Spontaneous
  Country: AU (occurrence: AU)
  Receive Date: 20251023
  Receipt Date: 20251023
  Transmission Date: 20260118
  Serious: Yes (Death, Other)
  Sender: ADC THERAPEUTICS
  Company Number: AU-BIOVITRUM-2025-AU-013057

PATIENT
  Age: 14 Year
  Sex: Female

DRUGS (1)
  1. ZYNLONTA [Suspect]
     Active Substance: LONCASTUXIMAB TESIRINE-LPYL
     Indication: Product used for unknown indication

REACTIONS (1)
  - Death [Fatal]
